FAERS Safety Report 9561375 (Version 1)
Quarter: 2013Q3

REPORT INFORMATION
  Report Type: Spontaneous
  Country: US (occurrence: US)
  Receive Date: 20130927
  Receipt Date: 20130927
  Transmission Date: 20140515
  Serious: No
  Sender: FDA-Public Use
  Company Number: US-BIOGENIDEC-2013BI058574

PATIENT
  Age: 29 Year
  Sex: Female
  Weight: 65 kg

DRUGS (11)
  1. TECFIDERA [Suspect]
     Indication: MULTIPLE SCLEROSIS
     Route: 048
     Dates: start: 20130528
  2. VITAMIN B-12 [Concomitant]
     Route: 048
  3. SPIRONOLACT [Concomitant]
     Route: 048
  4. VITAMIN B12 [Concomitant]
     Route: 048
  5. NUVARING [Concomitant]
  6. ACYCLOVIR [Concomitant]
     Route: 048
  7. ADVIL [Concomitant]
     Route: 048
  8. TOPAMAX [Concomitant]
     Route: 048
  9. DIAMOX SEQUE [Concomitant]
  10. VITAMIN D [Concomitant]
     Route: 048
  11. FLEXERIL [Concomitant]
     Route: 048

REACTIONS (9)
  - Constipation [Not Recovered/Not Resolved]
  - Haematochezia [Unknown]
  - Faecaloma [Unknown]
  - Decreased appetite [Unknown]
  - Weight increased [Unknown]
  - Weight decreased [Unknown]
  - Dizziness [Unknown]
  - Increased appetite [Not Recovered/Not Resolved]
  - Nausea [Not Recovered/Not Resolved]
